FAERS Safety Report 14365915 (Version 1)
Quarter: 2018Q1

REPORT INFORMATION
  Report Type: Report from Study
  Country: CA (occurrence: CA)
  Receive Date: 20180109
  Receipt Date: 20180109
  Transmission Date: 20180509
  Serious: Yes (Other)
  Sender: FDA-Public Use
  Company Number: CA-AMGEN-CANSL2017191583

PATIENT
  Age: 70 Year
  Sex: Male
  Weight: 76 kg

DRUGS (1)
  1. KYPROLIS [Suspect]
     Active Substance: CARFILZOMIB
     Indication: PLASMA CELL MYELOMA
     Dosage: 50 MG, DAYS 1,2,8,9,15,16
     Route: 042
     Dates: start: 20171025

REACTIONS (8)
  - Peripheral swelling [Recovered/Resolved]
  - Skin warm [Unknown]
  - Diarrhoea [Recovered/Resolved]
  - Infusion site phlebitis [Recovering/Resolving]
  - Pain in extremity [Recovered/Resolved]
  - Erythema [Not Recovered/Not Resolved]
  - Faeces soft [Recovered/Resolved]
  - Abdominal pain [Unknown]

NARRATIVE: CASE EVENT DATE: 20171222
